FAERS Safety Report 18603542 (Version 1)
Quarter: 2020Q4

REPORT INFORMATION
  Report Type: Spontaneous
  Country: US (occurrence: US)
  Receive Date: 20201210
  Receipt Date: 20201210
  Transmission Date: 20210114
  Serious: Yes (Hospitalization)
  Sender: FDA-Public Use
  Company Number: None

PATIENT
  Age: 80 Year
  Sex: Male
  Weight: 112.1 kg

DRUGS (1)
  1. BAMLANIVIMAB. [Suspect]
     Active Substance: BAMLANIVIMAB
     Indication: COVID-19
     Dosage: ?          OTHER FREQUENCY:ONCE;?
     Route: 041
     Dates: start: 20201201, end: 20201201

REACTIONS (5)
  - Atrioventricular block first degree [None]
  - COVID-19 pneumonia [None]
  - Hypovolaemia [None]
  - Hyponatraemia [None]
  - Sinus bradycardia [None]

NARRATIVE: CASE EVENT DATE: 20201203
